FAERS Safety Report 26167553 (Version 1)
Quarter: 2025Q4

REPORT INFORMATION
  Report Type: Spontaneous
  Country: US (occurrence: US)
  Receive Date: 20251217
  Receipt Date: 20251217
  Transmission Date: 20260118
  Serious: Yes (Death, Hospitalization)
  Sender: PACIRA
  Company Number: US-ORG100016242-2025000503

PATIENT

DRUGS (6)
  1. BUPIVACAINE [Suspect]
     Active Substance: BUPIVACAINE
     Indication: Off label use
     Route: 065
  2. BUPIVACAINE [Suspect]
     Active Substance: BUPIVACAINE
     Indication: Off label use
     Dosage: NOT PROVIDED
     Route: 065
  3. UNSPECIFIED INGREDIENT [Concomitant]
     Active Substance: UNSPECIFIED INGREDIENT
     Indication: General anaesthesia
     Dosage: NOT PROVIDED
     Route: 065
  4. KETOROLAC [Concomitant]
     Active Substance: KETOROLAC TROMETHAMINE
     Indication: Perioperative analgesia
     Dosage: 15 MG EVERY 8 HOURS
     Route: 042
  5. ACETAMINOPHEN [Concomitant]
     Active Substance: ACETAMINOPHEN
     Indication: Perioperative analgesia
     Dosage: 1000 MG EVERY 8 HOURS
     Route: 048
  6. Opioid therapy [Concomitant]
     Indication: Perioperative analgesia
     Dosage: NOT PROVIDED
     Route: 048

REACTIONS (3)
  - Death [Fatal]
  - Hospitalisation [Unknown]
  - Off label use [Unknown]
